FAERS Safety Report 16063265 (Version 3)
Quarter: 2019Q2

REPORT INFORMATION
  Report Type: Spontaneous
  Country: DE (occurrence: DE)
  Receive Date: 20190312
  Receipt Date: 20190412
  Transmission Date: 20190711
  Serious: Yes (Hospitalization, Other)
  Sender: FDA-Public Use
  Company Number: DE-MYLANLABS-2019M1021638

PATIENT
  Age: 34 Year
  Sex: Male
  Weight: 80 kg

DRUGS (5)
  1. LEPONEX [Suspect]
     Active Substance: CLOZAPINE
     Indication: SCHIZOPHRENIA
     Dosage: UNK
  2. TYSABRI [Suspect]
     Active Substance: NATALIZUMAB
     Indication: MULTIPLE SCLEROSIS
     Dosage: 300 MILLIGRAM, 4XW
     Route: 042
     Dates: start: 20180309, end: 20180508
  3. OLANZAPINE. [Concomitant]
     Active Substance: OLANZAPINE
     Indication: PRODUCT USED FOR UNKNOWN INDICATION
     Dosage: 10 MILLIGRAM, QD
  4. RISPERDAL [Concomitant]
     Active Substance: RISPERIDONE
     Indication: ORGANIC BRAIN SYNDROME
     Dosage: 1 MILLIGRAM, AM
  5. ZYPREXA [Concomitant]
     Active Substance: OLANZAPINE
     Indication: ORGANIC BRAIN SYNDROME
     Dosage: 5 MILLIGRAM, PM

REACTIONS (5)
  - Subarachnoid haemorrhage [Not Recovered/Not Resolved]
  - Fall [Recovered/Resolved]
  - Skull fractured base [Not Recovered/Not Resolved]
  - Meningitis bacterial [Recovered/Resolved]
  - Agranulocytosis [Recovered/Resolved]

NARRATIVE: CASE EVENT DATE: 201805
